FAERS Safety Report 15640595 (Version 2)
Quarter: 2018Q4

REPORT INFORMATION
  Report Type: Spontaneous
  Country: US (occurrence: US)
  Receive Date: 20181120
  Receipt Date: 20181221
  Transmission Date: 20190205
  Serious: Yes (Other)
  Sender: FDA-Public Use
  Company Number: DE-AQUA PHARMACEUTICALS-2018AQU000346

PATIENT

DRUGS (5)
  1. CONTRACEPTIVES [Concomitant]
     Active Substance: UNSPECIFIED INGREDIENT
     Indication: PRODUCT USED FOR UNKNOWN INDICATION
     Route: 048
  2. DESONIDE. [Suspect]
     Active Substance: DESONIDE
     Indication: SEBACEOUS ADENITIS
  3. METRONIDAZOLE. [Suspect]
     Active Substance: METRONIDAZOLE
     Indication: SEBACEOUS ADENITIS
     Route: 061
  4. AZELEX [Suspect]
     Active Substance: AZELAIC ACID
     Indication: SEBACEOUS ADENITIS
  5. MINOCYCLINE [Suspect]
     Active Substance: MINOCYCLINE\MINOCYCLINE HYDROCHLORIDE
     Indication: SEBACEOUS ADENITIS

REACTIONS (6)
  - Sebaceous adenitis [Unknown]
  - Scar [Not Recovered/Not Resolved]
  - Skin atrophy [Not Recovered/Not Resolved]
  - Burning sensation [Unknown]
  - Product use in unapproved indication [Unknown]
  - Treatment failure [Unknown]
